FAERS Safety Report 19807321 (Version 1)
Quarter: 2021Q3

REPORT INFORMATION
  Report Type: Spontaneous
  Country: US (occurrence: US)
  Receive Date: 20210908
  Receipt Date: 20210908
  Transmission Date: 20211014
  Serious: Yes (Other)
  Sender: FDA-Public Use
  Company Number: US-GLAXOSMITHKLINE-US2021GSK191724

PATIENT
  Sex: Female

DRUGS (6)
  1. ZANTAC [Suspect]
     Active Substance: RANITIDINE HYDROCHLORIDE
     Dosage: UNK, QD
     Route: 065
     Dates: start: 200901, end: 201512
  2. RANITIDINE CAPSULE [Suspect]
     Active Substance: RANITIDINE
     Dosage: 40 MG BOTH
     Route: 065
     Dates: start: 200901, end: 201501
  3. RANITIDINE. [Suspect]
     Active Substance: RANITIDINE
     Dosage: 40 MG, QD
     Route: 065
     Dates: start: 200901, end: 201501
  4. ZANTAC [Suspect]
     Active Substance: RANITIDINE HYDROCHLORIDE
     Dosage: UNK, QD
     Route: 065
     Dates: start: 200901, end: 201512
  5. RANITIDINE. [Suspect]
     Active Substance: RANITIDINE
     Dosage: 40 MG, QD
     Route: 065
     Dates: start: 200901, end: 201501
  6. RANITIDINE. [Suspect]
     Active Substance: RANITIDINE
     Dosage: 40 MG BOTH
     Route: 065
     Dates: start: 200901, end: 201501

REACTIONS (1)
  - Breast cancer [Unknown]
